FAERS Safety Report 17017017 (Version 2)
Quarter: 2019Q4

REPORT INFORMATION
  Report Type: Other
  Country: SE (occurrence: SE)
  Receive Date: 20191111
  Receipt Date: 20191202
  Transmission Date: 20200122
  Serious: Yes (Other)
  Sender: FDA-Public Use
  Company Number: SE-COVIS PHARMA B.V.-2019COV00268

PATIENT
  Sex: Female

DRUGS (8)
  1. TOLTERODINE [Suspect]
     Active Substance: TOLTERODINE
  2. VITAMIN D (ERGOCALCIFEROL) [Concomitant]
     Active Substance: ERGOCALCIFEROL
  3. LYRICA [Concomitant]
     Active Substance: PREGABALIN
  4. MODAFINIL (SANDOZ) [Suspect]
     Active Substance: MODAFINIL
  5. FURADANTIN [Concomitant]
     Active Substance: NITROFURANTOIN
  6. OMEPRAZOLE MAGNESIUM. [Suspect]
     Active Substance: OMEPRAZOLE MAGNESIUM
     Route: 048
  7. FAMPYRA [Concomitant]
     Active Substance: DALFAMPRIDINE
  8. VITAMIN B COMPLEX (CALCIUM PANTOTHENATE, NICOTINAMIDE, PYRIDOXINE, RIB [Concomitant]

REACTIONS (1)
  - Multiple sclerosis [Unknown]
